FAERS Safety Report 12541590 (Version 4)
Quarter: 2017Q2

REPORT INFORMATION
  Report Type: Spontaneous
  Country: US (occurrence: US)
  Receive Date: 20160708
  Receipt Date: 20170428
  Transmission Date: 20170830
  Serious: Yes (Death)
  Sender: FDA-Public Use
  Company Number: US-CELGENEUS-USA-2016071426

PATIENT
  Age: 58 Year
  Sex: Male

DRUGS (30)
  1. ABRAXANE [Suspect]
     Active Substance: PACLITAXEL
     Indication: PANCREATIC CARCINOMA METASTATIC
     Dosage: 125 MILLIGRAM/SQ. METER
     Route: 041
     Dates: start: 20160518, end: 20160518
  2. GEMCITABINE [Suspect]
     Active Substance: GEMCITABINE\GEMCITABINE HYDROCHLORIDE
     Dosage: 1000 MILLIGRAM/SQ. METER
     Route: 041
     Dates: start: 20160615, end: 20160615
  3. MS CONTIN [Concomitant]
     Active Substance: MORPHINE SULFATE
     Indication: ABDOMINAL PAIN
     Route: 065
     Dates: start: 20160502
  4. OMEPRAZOLE. [Concomitant]
     Active Substance: OMEPRAZOLE
     Indication: ABDOMINAL PAIN
     Route: 065
     Dates: start: 20160316
  5. LEVSIN [Concomitant]
     Active Substance: HYOSCYAMINE SULFATE
     Indication: ABDOMINAL PAIN
     Route: 065
     Dates: start: 20160314, end: 20160512
  6. METFORMIN [Concomitant]
     Active Substance: METFORMIN HYDROCHLORIDE
     Indication: TYPE 2 DIABETES MELLITUS
     Route: 065
     Dates: start: 20150720
  7. GEMCITABINE [Suspect]
     Active Substance: GEMCITABINE\GEMCITABINE HYDROCHLORIDE
     Dosage: 1000 MILLIGRAM/SQ. METER
     Route: 041
     Dates: start: 20160525, end: 20160525
  8. DEMCIZUMAB [Suspect]
     Active Substance: DEMCIZUMAB
     Dosage: 3.5 MILLIGRAM/SQ. METER
     Route: 041
     Dates: start: 20160615, end: 20160615
  9. ZOFRAN [Concomitant]
     Active Substance: ONDANSETRON HYDROCHLORIDE
     Indication: NAUSEA
     Route: 065
     Dates: start: 20160419
  10. DEMCIZUMAB [Suspect]
     Active Substance: DEMCIZUMAB
     Dosage: 3.5 MILLIGRAM/KILOGRAM
     Route: 041
     Dates: start: 20160601, end: 20160601
  11. COMPAZINE [Concomitant]
     Active Substance: PROCHLORPERAZINE MALEATE
     Indication: NAUSEA
     Route: 065
     Dates: start: 20160422
  12. INSULIN R [Concomitant]
     Indication: TYPE 2 DIABETES MELLITUS
     Route: 065
     Dates: start: 20160419
  13. ABRAXANE [Suspect]
     Active Substance: PACLITAXEL
     Dosage: 125 MILLIGRAM/SQ. METER
     Route: 041
     Dates: start: 20160525, end: 20160525
  14. ABRAXANE [Suspect]
     Active Substance: PACLITAXEL
     Dosage: 125 MILLIGRAM/SQ. METER
     Route: 041
     Dates: start: 20160622, end: 20160622
  15. GEMCITABINE [Suspect]
     Active Substance: GEMCITABINE\GEMCITABINE HYDROCHLORIDE
     Indication: PANCREATIC CARCINOMA METASTATIC
     Dosage: 1000 MILLIGRAM/SQ. METER
     Route: 041
     Dates: start: 20160518, end: 20160518
  16. SENOKOT [Concomitant]
     Active Substance: SENNOSIDES
     Indication: CONSTIPATION
     Route: 065
     Dates: start: 20160422
  17. SILDENAFIL. [Concomitant]
     Active Substance: SILDENAFIL
     Indication: ERECTILE DYSFUNCTION
     Route: 065
     Dates: start: 20160417
  18. BENADRYL [Concomitant]
     Active Substance: DIPHENHYDRAMINE HYDROCHLORIDE
     Indication: PRURITUS
     Route: 065
     Dates: start: 20160527
  19. GEMCITABINE [Suspect]
     Active Substance: GEMCITABINE\GEMCITABINE HYDROCHLORIDE
     Dosage: 1000 MILLIGRAM/SQ. METER
     Route: 041
     Dates: start: 20160622, end: 20160622
  20. ABRAXANE [Suspect]
     Active Substance: PACLITAXEL
     Dosage: 125 MILLIGRAM/SQ. METER
     Route: 041
     Dates: start: 20160615, end: 20160615
  21. DEMCIZUMAB [Suspect]
     Active Substance: DEMCIZUMAB
     Dosage: 3.5 MILLIGRAM/SQ. METER
     Route: 041
     Dates: start: 20160628, end: 20160628
  22. DRONABINOL. [Concomitant]
     Active Substance: DRONABINOL
     Indication: DECREASED APPETITE
     Route: 065
     Dates: start: 20160517
  23. ALUM-MAG-HYDROX [Concomitant]
     Indication: ABDOMINAL PAIN
     Route: 065
     Dates: start: 20160314, end: 20160512
  24. LIPITOR [Concomitant]
     Active Substance: ATORVASTATIN CALCIUM
     Indication: HYPERLIPIDAEMIA
     Route: 065
     Dates: start: 20160217
  25. MORPHINE [Concomitant]
     Active Substance: MORPHINE
     Indication: ABDOMINAL PAIN
     Route: 065
     Dates: start: 20160511
  26. TYLENOL [Concomitant]
     Active Substance: ACETAMINOPHEN
     Indication: PYREXIA
     Route: 065
     Dates: start: 20160526, end: 20160527
  27. ABRAXANE [Suspect]
     Active Substance: PACLITAXEL
     Dosage: 125 MILLIGRAM/SQ. METER
     Route: 041
     Dates: start: 20160628, end: 20160628
  28. DEMCIZUMAB [Suspect]
     Active Substance: DEMCIZUMAB
     Indication: PANCREATIC CARCINOMA METASTATIC
     Dosage: 3.5 MILLIGRAM/SQ. METER
     Route: 041
     Dates: start: 20160518, end: 20160518
  29. INSULIN H [Concomitant]
     Indication: TYPE 2 DIABETES MELLITUS
     Route: 065
     Dates: start: 20160425
  30. NORCO [Concomitant]
     Active Substance: ACETAMINOPHEN\HYDROCODONE BITARTRATE
     Indication: ABDOMINAL PAIN
     Route: 065
     Dates: start: 20160422, end: 20160512

REACTIONS (1)
  - Gastrointestinal haemorrhage [Fatal]

NARRATIVE: CASE EVENT DATE: 20160704
